FAERS Safety Report 17364960 (Version 1)
Quarter: 2020Q1

REPORT INFORMATION
  Report Type: Spontaneous
  Country: PL (occurrence: PL)
  Receive Date: 20200204
  Receipt Date: 20200204
  Transmission Date: 20200409
  Serious: Yes (Other)
  Sender: FDA-Public Use
  Company Number: PL-ROCHE-2538971

PATIENT
  Age: 50 Year
  Sex: Female
  Weight: 56 kg

DRUGS (4)
  1. ESBRIET [Suspect]
     Active Substance: PIRFENIDONE
     Indication: PULMONARY FIBROSIS
     Route: 048
     Dates: start: 20190528, end: 20191213
  2. METYPRED [METHYLPREDNISOLONE] [Concomitant]
     Active Substance: METHYLPREDNISOLONE
     Indication: PULMONARY FIBROSIS
     Dosage: FREQUENCY: 1X1
     Route: 048
     Dates: start: 20160502
  3. ZULBEX [Concomitant]
     Indication: PROPHYLAXIS
     Dosage: FREQUENCY: 1X1
     Route: 048
     Dates: start: 20180928
  4. SYLVIE [Concomitant]
     Dosage: FREQUENCY: 1X1
     Route: 048

REACTIONS (2)
  - Face oedema [Recovered/Resolved]
  - Oedema peripheral [Recovered/Resolved]

NARRATIVE: CASE EVENT DATE: 20191213
